FAERS Safety Report 12489525 (Version 1)
Quarter: 2016Q2

REPORT INFORMATION
  Report Type: Spontaneous
  Country: US (occurrence: US)
  Receive Date: 20160622
  Receipt Date: 20160622
  Transmission Date: 20160815
  Serious: Yes (Other)
  Sender: FDA-Public Use
  Company Number: US-TEVA-668829USA

PATIENT
  Age: 42 Year
  Sex: Female

DRUGS (1)
  1. ZECUITY [Suspect]
     Active Substance: SUMATRIPTAN SUCCINATE
     Indication: MIGRAINE
     Route: 062
     Dates: start: 20160516, end: 20160516

REACTIONS (5)
  - Application site scar [Not Recovered/Not Resolved]
  - Application site erythema [Recovered/Resolved with Sequelae]
  - Application site inflammation [Not Recovered/Not Resolved]
  - Skin tightness [Not Recovered/Not Resolved]
  - Application site discolouration [Not Recovered/Not Resolved]

NARRATIVE: CASE EVENT DATE: 20160516
